FAERS Safety Report 6881462-7 (Version None)
Quarter: 2010Q3

REPORT INFORMATION
  Report Type: 
  Country: None (occurrence: None)
  Receive Date: 20100728
  Receipt Date: 20100721
  Transmission Date: 20110219
  Serious: Yes (Death)
  Sender: FDA-Public Use
  Company Number: US-BRISTOL-MYERS SQUIBB COMPANY-15198872

PATIENT
  Age: 82 Year
  Sex: Male

DRUGS (6)
  1. ERBITUX [Suspect]
     Indication: COLON CANCER
     Route: 042
     Dates: start: 20100429
  2. IRINOTECAN HCL [Suspect]
     Indication: COLON CANCER
  3. COUMADIN [Concomitant]
  4. COREG [Concomitant]
     Dosage: 1DF-6.25(UNITS NOT SPECIFIED)
  5. DIGOXIN [Concomitant]
  6. LISINOPRIL [Concomitant]

REACTIONS (2)
  - ACUTE MYOCARDIAL INFARCTION [None]
  - DRUG HYPERSENSITIVITY [None]
